FAERS Safety Report 17910095 (Version 1)
Quarter: 2020Q2

REPORT INFORMATION
  Report Type: Spontaneous
  Country: IT (occurrence: IT)
  Receive Date: 20200617
  Receipt Date: 20200617
  Transmission Date: 20200714
  Serious: Yes (Other)
  Sender: FDA-Public Use
  Company Number: IT-SAMSUNG BIOEPIS-SB-2020-19391

PATIENT
  Age: 45 Year
  Sex: Female
  Weight: 52 kg

DRUGS (2)
  1. DOCETAXEL. [Suspect]
     Active Substance: DOCETAXEL
     Indication: BREAST CANCER
     Route: 065
     Dates: start: 20190809
  2. TRASTUZUMAB. [Suspect]
     Active Substance: TRASTUZUMAB
     Indication: NEOPLASM MALIGNANT
     Route: 065
     Dates: start: 20190809

REACTIONS (5)
  - Hot flush [Recovering/Resolving]
  - Product use in unapproved indication [Unknown]
  - Neurotoxicity [Unknown]
  - Drug intolerance [Unknown]
  - Sense of oppression [Recovering/Resolving]

NARRATIVE: CASE EVENT DATE: 20190809
